FAERS Safety Report 15095184 (Version 1)
Quarter: 2018Q3

REPORT INFORMATION
  Report Type: Spontaneous
  Country: TW (occurrence: TW)
  Receive Date: 20180702
  Receipt Date: 20180702
  Transmission Date: 20181010
  Serious: Yes (Hospitalization)
  Sender: FDA-Public Use
  Company Number: TW-SCIEGEN PHARMACEUTICALS INC-2018SCILIT00422

PATIENT
  Age: 51 Year
  Sex: Female

DRUGS (4)
  1. VALPROIC ACID. [Suspect]
     Active Substance: VALPROIC ACID
     Indication: MANIA
     Dosage: 1000 MG, QD
     Route: 065
  2. VALPROIC ACID. [Suspect]
     Active Substance: VALPROIC ACID
     Indication: BIPOLAR I DISORDER
  3. QUETIAPINE. [Suspect]
     Active Substance: QUETIAPINE
     Indication: BIPOLAR I DISORDER
     Dosage: 200 MG, QD
     Route: 065
  4. QUETIAPINE. [Suspect]
     Active Substance: QUETIAPINE
     Indication: MANIA
     Dosage: 400 MG, QD
     Route: 065

REACTIONS (2)
  - Ileus paralytic [Recovering/Resolving]
  - Hypothyroidism [Recovering/Resolving]
